FAERS Safety Report 6108081-4 (Version None)
Quarter: 2009Q1

REPORT INFORMATION
  Report Type: 
  Country: None (occurrence: None)
  Receive Date: 20090309
  Receipt Date: 20090227
  Transmission Date: 20090719
  Serious: Yes (Other)
  Sender: FDA-Public Use
  Company Number: GB-ROCHE-617889

PATIENT
  Sex: Female
  Weight: 92.5 kg

DRUGS (8)
  1. ORLISTAT [Suspect]
     Indication: OBESITY
     Route: 048
     Dates: start: 20080812, end: 20081023
  2. WARFARIN SODIUM [Concomitant]
     Indication: DEEP VEIN THROMBOSIS
     Route: 048
  3. CO-AMILOFRUSE [Concomitant]
     Route: 048
  4. LANSOPRAZOLE [Concomitant]
     Indication: HIATUS HERNIA
     Route: 048
  5. THYROXINE [Concomitant]
     Indication: HYPOTHYROIDISM
     Route: 048
  6. SIMVASTATIN [Concomitant]
     Route: 048
  7. CALCICHEW [Concomitant]
     Indication: BONE DENSITOMETRY
     Dosage: DOSE: D3-40 2 TABLETS DAILY; DRUG NAME: CALI CHEW
     Route: 048
  8. NULYTELY [Concomitant]
     Indication: CONSTIPATION
     Dosage: DOSE: 2 SACHETS DAILY
     Route: 048

REACTIONS (1)
  - DIVERTICULITIS [None]
